FAERS Safety Report 16002286 (Version 6)
Quarter: 2020Q1

REPORT INFORMATION
  Report Type: Report from Study
  Country: US (occurrence: US)
  Receive Date: 20190225
  Receipt Date: 20200317
  Transmission Date: 20200409
  Serious: Yes (Hospitalization)
  Sender: FDA-Public Use
  Company Number: US-ACTELION-A-NJ2017-159852

PATIENT
  Age: 48 Year
  Sex: Female

DRUGS (2)
  1. PLAQUENIL [Concomitant]
     Active Substance: HYDROXYCHLOROQUINE SULFATE
  2. OPSUMIT [Suspect]
     Active Substance: MACITENTAN
     Indication: PULMONARY ARTERIAL HYPERTENSION
     Dosage: 10 MG, QD
     Route: 048
     Dates: start: 20150805

REACTIONS (13)
  - Dyspnoea [Unknown]
  - Neuralgia [Not Recovered/Not Resolved]
  - Systemic lupus erythematosus [Unknown]
  - Pulmonary hypertension [Unknown]
  - Oedema [Recovered/Resolved]
  - Rash [Unknown]
  - Fluid retention [Unknown]
  - Guillain-Barre syndrome [Unknown]
  - Multiple allergies [Unknown]
  - Paraesthesia [Not Recovered/Not Resolved]
  - Muscular weakness [Not Recovered/Not Resolved]
  - Neutrophilic dermatosis [Unknown]
  - Nasal congestion [Unknown]

NARRATIVE: CASE EVENT DATE: 20170911
